FAERS Safety Report 5079368-1 (Version None)
Quarter: 2006Q3

REPORT INFORMATION
  Report Type: 
  Country: None (occurrence: None)
  Receive Date: 20060809
  Receipt Date: 20060725
  Transmission Date: 20061208
  Serious: Yes (Other)
  Sender: FDA-Public Use
  Company Number: FACT0600315

PATIENT
  Age: 42 Year
  Sex: Female
  Weight: 66.2 kg

DRUGS (9)
  1. FACTIVE [Suspect]
     Indication: RESPIRATORY TRACT INFECTION BACTERIAL
     Dosage: 320 MG, QD, ORAL
     Route: 048
     Dates: start: 20060614, end: 20060623
  2. FLORINEF [Concomitant]
  3. NORVASC /GRC/ (AMLODIPINE) [Concomitant]
  4. ELAVIL [Concomitant]
  5. ADVAIR DISKUS (FLUTICASONE PROPIONATE, SALMETEROL XINAFOATE) [Concomitant]
  6. DUONEB (FLUTICASONE PROPIONATE) [Concomitant]
  7. TESSALON PERLE (VENZONATATE) [Concomitant]
  8. SINGULAIR [Concomitant]
  9. ZYRTEC [Concomitant]

REACTIONS (1)
  - ANAPHYLACTOID REACTION [None]
